FAERS Safety Report 7729946-3 (Version None)
Quarter: 2011Q3

REPORT INFORMATION
  Report Type: 
  Country: None (occurrence: None)
  Receive Date: 20110906
  Receipt Date: 20110830
  Transmission Date: 20111222
  Serious: Yes (Hospitalization)
  Sender: FDA-Public Use
  Company Number: US-ROCHE-797381

PATIENT
  Sex: Female
  Weight: 198 kg

DRUGS (6)
  1. LANSOPRAZOLE [Concomitant]
     Route: 048
     Dates: start: 20100101
  2. GLIMEPIRIDE [Concomitant]
     Indication: DIABETES MELLITUS
     Route: 048
     Dates: start: 20070101, end: 20110808
  3. METOPROLOL [Concomitant]
     Indication: HYPERTENSION
     Route: 048
     Dates: start: 20100101
  4. BEVACIZUMAB [Suspect]
     Indication: BREAST CANCER
     Dosage: FREQUENCY: THRICE
     Route: 042
     Dates: start: 20110503, end: 20110726
  5. CYCLOPHOSPHAMIDE [Suspect]
     Dosage: LAST DOSE WAS ON 04 AUGUST 2011
     Route: 048
     Dates: start: 20110503, end: 20110804
  6. METHOTREXATE [Suspect]
     Dosage: FREQUENCY: TWICE DAILY , EVERY 2 DAYS WEEKLY.
     Route: 048
     Dates: start: 20110503, end: 20110810

REACTIONS (1)
  - PANCREATITIS ACUTE [None]
